FAERS Safety Report 8961607 (Version 2)
Quarter: 2012Q4

REPORT INFORMATION
  Report Type: 
  Country: US (occurrence: US)
  Receive Date: 20121212
  Receipt Date: 20121218
  Transmission Date: 20130627
  Serious: Yes (Hospitalization, Other)
  Sender: FDA-Public Use
  Company Number: US-INCYTE CORPORATION-2012IN001629

PATIENT
  Age: 66 None
  Sex: Male

DRUGS (10)
  1. JAKAFI [Suspect]
     Indication: MYELOFIBROSIS
     Dosage: 10 mg, bid
     Route: 048
     Dates: start: 20120702, end: 20120709
  2. JAKAFI [Suspect]
     Dosage: 20 mg, bid
     Route: 048
     Dates: start: 20120709, end: 20120730
  3. JAKAFI [Suspect]
     Dosage: 10 mg, bid
     Route: 048
     Dates: start: 20120730, end: 20120813
  4. JAKAFI [Suspect]
     Dosage: 15 mg, bid
     Route: 048
     Dates: start: 20120813, end: 20120822
  5. JAKAFI [Suspect]
     Dosage: 5 mg, bid
     Route: 048
     Dates: start: 20120829
  6. FISH OIL [Concomitant]
  7. METOPROLOL [Concomitant]
  8. OMEPRAZOLE [Concomitant]
  9. SAW PALMETTO [Concomitant]
  10. ACYCLOVIR [Concomitant]

REACTIONS (5)
  - Pancytopenia [Recovering/Resolving]
  - Gastrointestinal haemorrhage [Unknown]
  - White blood cell count decreased [Recovering/Resolving]
  - Haemoglobin decreased [Recovering/Resolving]
  - Haemorrhoids [Unknown]
